FAERS Safety Report 7617000-0 (Version None)
Quarter: 2011Q3

REPORT INFORMATION
  Report Type: 
  Country: None (occurrence: None)
  Receive Date: 20110718
  Receipt Date: 20071105
  Transmission Date: 20111222
  Serious: No
  Sender: FDA-Public Use
  Company Number: 2007BI023703

PATIENT
  Sex: Female

DRUGS (2)
  1. TYSABRI [Suspect]
     Indication: MULTIPLE SCLEROSIS
     Route: 042
     Dates: start: 20070822, end: 20071017
  2. AVONEX [Concomitant]
     Indication: MULTIPLE SCLEROSIS
     Route: 030
     Dates: start: 20071205

REACTIONS (15)
  - MUSCLE ATROPHY [None]
  - DIARRHOEA [None]
  - INFLUENZA LIKE ILLNESS [None]
  - INFLAMMATION [None]
  - GASTROENTERITIS VIRAL [None]
  - DECREASED IMMUNE RESPONSIVENESS [None]
  - BONE PAIN [None]
  - IMMUNE SYSTEM DISORDER [None]
  - DEPRESSION [None]
  - INFLUENZA [None]
  - MALAISE [None]
  - ORAL HERPES [None]
  - PAIN IN EXTREMITY [None]
  - SINUSITIS [None]
  - NASOPHARYNGITIS [None]
